FAERS Safety Report 4554814-8 (Version None)
Quarter: 2005Q1

REPORT INFORMATION
  Report Type: 
  Country: None (occurrence: None)
  Receive Date: 20041227
  Receipt Date: 20040809
  Transmission Date: 20050727
  Serious: Yes (Life-Threatening, Hospitalization, Disabling, Other)
  Sender: FDA-Public Use
  Company Number: 2004-0007125

PATIENT
  Age: 38 Year
  Sex: Male
  Weight: 47.2 kg

DRUGS (18)
  1. VIREAD [Suspect]
     Indication: HIV INFECTION
     Dosage: 300 MG, 1 IN 1 D, ORAL
     Route: 048
     Dates: start: 20030802, end: 20030902
  2. ABACAVIR [Concomitant]
  3. NORVIR [Concomitant]
  4. ATAZANAVIR [Concomitant]
  5. PIOGLITAZONE HCL [Concomitant]
  6. NEURONTIN [Concomitant]
  7. PREVACID [Concomitant]
  8. TRICOR [Concomitant]
  9. ENALAPRIL MALEATE [Concomitant]
  10. MIRTAZAPINE [Concomitant]
  11. TRAZODONE HCL [Concomitant]
  12. LANTUS [Concomitant]
  13. HUMALOG (INSULIN GLARGINE) [Concomitant]
  14. HUMALOG [Concomitant]
  15. TIGAN [Concomitant]
  16. OXYCONTIN [Concomitant]
  17. RENAGEL [Concomitant]
  18. TYLOX [Concomitant]

REACTIONS (3)
  - PYREXIA [None]
  - RENAL FAILURE ACUTE [None]
  - RENAL TUBULAR NECROSIS [None]
